FAERS Safety Report 7922153-0 (Version None)
Quarter: 2011Q4

REPORT INFORMATION
  Report Type: 
  Country: None (occurrence: None)
  Receive Date: 20111117
  Receipt Date: 20110119
  Transmission Date: 20120403
  Serious: Yes (Hospitalization)
  Sender: FDA-Public Use
  Company Number: US-AMGEN-QUU371824

PATIENT
  Age: 49 Year
  Sex: Female

DRUGS (5)
  1. METOPROLOL TARTRATE [Concomitant]
     Dosage: UNK UNK, UNK
  2. ENBREL [Suspect]
     Dates: start: 20000301
  3. PREDNISONE TAB [Concomitant]
     Dosage: UNK UNK, UNK
  4. METHOTREXATE [Concomitant]
     Dosage: UNK UNK, UNK
  5. ENBREL [Suspect]
     Indication: RHEUMATOID ARTHRITIS
     Dosage: 25 MG, 2 TIMES/WK
     Dates: start: 20000301

REACTIONS (5)
  - BACTERIAL FOOD POISONING [None]
  - ARTHRALGIA [None]
  - MOUTH ULCERATION [None]
  - GASTROINTESTINAL INFECTION [None]
  - RHEUMATOID ARTHRITIS [None]
